FAERS Safety Report 9442772 (Version 1)
Quarter: 2013Q3

REPORT INFORMATION
  Report Type: Report from Study
  Country: VE (occurrence: VE)
  Receive Date: 20130806
  Receipt Date: 20130806
  Transmission Date: 20140515
  Serious: Yes (Death, Hospitalization)
  Sender: FDA-Public Use
  Company Number: VE-ABBOTT-13P-178-1129285-00

PATIENT
  Age: 41 Year
  Sex: Female
  Weight: 80 kg

DRUGS (5)
  1. ZEMPLAR [Suspect]
     Indication: RENAL FAILURE CHRONIC
     Route: 042
     Dates: start: 20130311, end: 201305
  2. ERITROPOYETINA [Concomitant]
     Indication: RENAL FAILURE CHRONIC
  3. ERITROPOYETINA [Concomitant]
     Indication: HAEMODIALYSIS
  4. BENUTREX [Concomitant]
     Indication: HAEMODIALYSIS
  5. BENUTREX [Concomitant]
     Indication: RENAL FAILURE CHRONIC

REACTIONS (3)
  - Sepsis [Fatal]
  - Thrombosis in device [Not Recovered/Not Resolved]
  - Infected fistula [Not Recovered/Not Resolved]
